FAERS Safety Report 10264272 (Version 2)
Quarter: 2014Q4

REPORT INFORMATION
  Report Type: Spontaneous
  Country: SE (occurrence: SE)
  Receive Date: 20140627
  Receipt Date: 20141218
  Transmission Date: 20150528
  Serious: Yes (Hospitalization)
  Sender: FDA-Public Use
  Company Number: SE-ASTRAZENECA-2014SE45354

PATIENT
  Age: 48 Year
  Sex: Female

DRUGS (6)
  1. SEROQUEL [Suspect]
     Active Substance: QUETIAPINE FUMARATE
     Dosage: EVER OTHER DAY
     Route: 048
  2. NEUROLEPTICS [Concomitant]
     Active Substance: UNSPECIFIED INGREDIENT
  3. BENZODIAZEPINES [Concomitant]
     Active Substance: BENZODIAZEPINE
  4. ANTIEPILEPTIC DRUGS [Concomitant]
     Active Substance: UNSPECIFIED INGREDIENT
  5. TRICYCLIC ANTIDEPRESSANTS [Concomitant]
     Active Substance: UNSPECIFIED INGREDIENT
  6. XANOR [Suspect]
     Active Substance: ALPRAZOLAM
     Dosage: EVER OTHER DAY
     Route: 065

REACTIONS (2)
  - Toxicity to various agents [Unknown]
  - Intentional self-injury [Unknown]

NARRATIVE: CASE EVENT DATE: 20140520
